FAERS Safety Report 10336708 (Version 1)
Quarter: 2014Q3

REPORT INFORMATION
  Report Type: Spontaneous
  Country: US (occurrence: US)
  Receive Date: 20140723
  Receipt Date: 20140723
  Transmission Date: 20150326
  Serious: No
  Sender: FDA-Public Use
  Company Number: US-GALDERMA-US13003350

PATIENT
  Age: 52 Year
  Sex: Female
  Weight: 66 kg

DRUGS (5)
  1. ACIDOPHILUS [Concomitant]
     Active Substance: LACTOBACILLUS ACIDOPHILUS
     Indication: SUPPLEMENTATION THERAPY
     Route: 048
  2. CALCIUM [Concomitant]
     Active Substance: CALCIUM
     Indication: SUPPLEMENTATION THERAPY
     Route: 048
  3. CETAPHIL DAILY FACIAL CLEANSER [Concomitant]
     Active Substance: COSMETICS
     Indication: THERAPEUTIC SKIN CARE TOPICAL
     Route: 061
  4. ORACEA [Suspect]
     Active Substance: DOXYCYCLINE
     Indication: ROSACEA
     Dosage: 40 MG
     Route: 048
     Dates: start: 20131016, end: 20131021
  5. LEVOTHYROXINE [Concomitant]
     Active Substance: LEVOTHYROXINE
     Indication: HYPOTHYROIDISM
     Dosage: 0.05 MG
     Route: 048

REACTIONS (13)
  - Fatigue [Recovering/Resolving]
  - Eye irritation [Recovering/Resolving]
  - Sneezing [Recovering/Resolving]
  - Eye pain [Recovered/Resolved]
  - Throat irritation [Recovered/Resolved]
  - Oropharyngeal pain [Recovered/Resolved]
  - Glassy eyes [Recovering/Resolving]
  - Vision blurred [Recovering/Resolving]
  - Ocular rosacea [Recovering/Resolving]
  - Aphthous stomatitis [Recovered/Resolved]
  - Nasopharyngitis [Recovering/Resolving]
  - Dermatitis [Recovering/Resolving]
  - Lacrimation increased [Recovering/Resolving]

NARRATIVE: CASE EVENT DATE: 20131018
